FAERS Safety Report 17487122 (Version 1)
Quarter: 2020Q1

REPORT INFORMATION
  Report Type: Spontaneous
  Country: US (occurrence: US)
  Receive Date: 20200303
  Receipt Date: 20200303
  Transmission Date: 20200409
  Serious: Yes (Other)
  Sender: FDA-Public Use
  Company Number: US-UNITED THERAPEUTICS-UNT-2020-003228

PATIENT
  Age: 77 Year
  Sex: Female
  Weight: 71.66 kg

DRUGS (3)
  1. REMODULIN [Suspect]
     Active Substance: TREPROSTINIL
     Indication: PULMONARY ARTERIAL HYPERTENSION
     Dosage: 0.061 ?G/KG, CONTINUING
     Route: 058
     Dates: start: 20181127
  2. WARFARIN [Suspect]
     Active Substance: WARFARIN
     Indication: PRODUCT USED FOR UNKNOWN INDICATION
     Dosage: UNK
     Route: 065
  3. ADEMPAS [Suspect]
     Active Substance: RIOCIGUAT
     Indication: PRODUCT USED FOR UNKNOWN INDICATION
     Dosage: UNK
     Route: 065

REACTIONS (8)
  - Haemorrhage [Unknown]
  - Infusion site pain [Unknown]
  - Diarrhoea [Unknown]
  - Thrombocytopenia [Unknown]
  - Bronchitis [Unknown]
  - Anaemia [Unknown]
  - Infusion site swelling [Unknown]
  - Malaise [Unknown]

NARRATIVE: CASE EVENT DATE: 20200224
